FAERS Safety Report 18594569 (Version 1)
Quarter: 2020Q4

REPORT INFORMATION
  Report Type: Spontaneous
  Country: US (occurrence: US)
  Receive Date: 20201208
  Receipt Date: 20201208
  Transmission Date: 20210114
  Serious: Yes (Hospitalization)
  Sender: FDA-Public Use
  Company Number: None

PATIENT
  Age: 58 Year
  Sex: Female

DRUGS (7)
  1. LAMOTRIGINE. [Concomitant]
     Active Substance: LAMOTRIGINE
  2. VITAMIN D3 [Concomitant]
     Active Substance: CHOLECALCIFEROL
  3. OXYCODONE [Concomitant]
     Active Substance: OXYCODONE
  4. LAMICTAL [Concomitant]
     Active Substance: LAMOTRIGINE
  5. DALFAMPRIDINE. [Suspect]
     Active Substance: DALFAMPRIDINE
     Indication: MULTIPLE SCLEROSIS
     Route: 048
  6. LITHIUM CARB [Concomitant]
     Active Substance: LITHIUM CARBONATE
  7. ALENDRONATE [Concomitant]
     Active Substance: ALENDRONATE SODIUM

REACTIONS (4)
  - Rib fracture [None]
  - Fall [None]
  - Therapy interrupted [None]
  - Pneumothorax [None]

NARRATIVE: CASE EVENT DATE: 20201208
